FAERS Safety Report 17437046 (Version 1)
Quarter: 2020Q1

REPORT INFORMATION
  Report Type: Spontaneous
  Country: US (occurrence: US)
  Receive Date: 20200219
  Receipt Date: 20200219
  Transmission Date: 20200409
  Serious: No
  Sender: FDA-Public Use
  Company Number: US-BAYER-2020-024004

PATIENT
  Age: 40 Year
  Sex: Female

DRUGS (1)
  1. CLARITIN-D 24 HOUR [Suspect]
     Active Substance: LORATADINE\PSEUDOEPHEDRINE SULFATE
     Dosage: 1 DF, HS
     Route: 048
     Dates: start: 202001, end: 202001

REACTIONS (2)
  - Expired product administered [Unknown]
  - Somnolence [Unknown]

NARRATIVE: CASE EVENT DATE: 202001
